FAERS Safety Report 19948022 (Version 3)
Quarter: 2021Q4

REPORT INFORMATION
  Report Type: Spontaneous
  Country: US (occurrence: US)
  Receive Date: 20211012
  Receipt Date: 20211123
  Transmission Date: 20220303
  Serious: Yes (Other)
  Sender: FDA-Public Use
  Company Number: US-SUNOVION-2021SUN003868

PATIENT
  Age: 73 Year
  Sex: Female

DRUGS (2)
  1. APTIOM [Suspect]
     Active Substance: ESLICARBAZEPINE ACETATE
     Indication: Seizure
     Dosage: 200 MG, BID
     Route: 048
  2. METOPROLOL [Concomitant]
     Active Substance: METOPROLOL

REACTIONS (6)
  - Seizure [Unknown]
  - Pollakiuria [Unknown]
  - Blood cholesterol increased [Unknown]
  - Depression [Unknown]
  - Underdose [Unknown]
  - Off label use [Unknown]
